FAERS Safety Report 6532676-7 (Version None)
Quarter: 2009Q4

REPORT INFORMATION
  Report Type: 
  Country: None (occurrence: None)
  Receive Date: 20091231
  Receipt Date: 20091217
  Transmission Date: 20100525
  Serious: Yes (Death)
  Sender: FDA-Public Use
  Company Number: 056

PATIENT
  Age: 73 Year
  Sex: Female
  Weight: 93.8946 kg

DRUGS (19)
  1. FAZACLO ODT [Suspect]
     Indication: BIPOLAR DISORDER
     Dosage: 200MG PO DAILY
     Route: 048
     Dates: start: 20050601, end: 20060427
  2. FAZACLO ODT [Suspect]
     Indication: PARANOIA
     Dosage: 200MG PO DAILY
     Route: 048
     Dates: start: 20050601, end: 20060427
  3. AMBIEN [Concomitant]
  4. ZOLOFT [Concomitant]
  5. RISPERIDONE [Concomitant]
  6. COZAAR [Concomitant]
  7. SORBITOL [Concomitant]
  8. SOTALOL [Concomitant]
  9. FLOVENT [Concomitant]
  10. SYNTHROID [Concomitant]
  11. DITROPAN XL [Concomitant]
  12. ATIVAN [Concomitant]
  13. M.V.I. [Concomitant]
  14. PREVACID [Concomitant]
  15. MOM [Concomitant]
  16. FERROUS SULFATE TAB [Concomitant]
  17. OYSTER CALCIUM [Concomitant]
  18. SENOKOT [Concomitant]
  19. TYLENOL (CAPLET) [Concomitant]

REACTIONS (8)
  - BREAST CANCER [None]
  - CHRONIC OBSTRUCTIVE PULMONARY DISEASE [None]
  - HYPOTENSION [None]
  - MENTAL DISORDER [None]
  - OBESITY [None]
  - PNEUMONIA [None]
  - RENAL FAILURE ACUTE [None]
  - SEPSIS [None]
